FAERS Safety Report 5343909-7 (Version None)
Quarter: 2007Q2

REPORT INFORMATION
  Report Type: 
  Country: None (occurrence: None)
  Receive Date: 20070604
  Receipt Date: 20070524
  Transmission Date: 20071010
  Serious: Yes (Hospitalization)
  Sender: FDA-Public Use
  Company Number: US-GENENTECH-242138

PATIENT
  Sex: Female

DRUGS (1)
  1. RITUXAN [Suspect]
     Indication: ARTHRITIS
     Dates: start: 20070508

REACTIONS (2)
  - PNEUMONIA [None]
  - RESPIRATORY SYNCYTIAL VIRUS INFECTION [None]
